FAERS Safety Report 7438486-0 (Version None)
Quarter: 2011Q2

REPORT INFORMATION
  Report Type: 
  Country: None (occurrence: None)
  Receive Date: 20110426
  Receipt Date: 20110420
  Transmission Date: 20111010
  Serious: Yes (Life-Threatening, Hospitalization)
  Sender: FDA-Public Use
  Company Number: BE-PFIZER INC-2011086331

PATIENT
  Age: 87 Year
  Sex: Female

DRUGS (11)
  1. HEXOMEDINE THROAT SPRAY ^AVENTIS^ [Concomitant]
     Dosage: UNK
     Route: 055
     Dates: start: 20110301, end: 20110323
  2. VALTRAN [Interacting]
     Indication: PAIN
     Dosage: 10 UNK, UNK
     Route: 048
     Dates: start: 20100301
  3. DAFALGAN [Concomitant]
     Dosage: 30 ML, UNK
     Route: 048
     Dates: start: 20110309
  4. EMCONCOR [Concomitant]
     Dosage: 2.5 MG, UNK
     Route: 048
     Dates: start: 20110303, end: 20110323
  5. CEFTRIAXONE [Concomitant]
     Indication: EVIDENCE BASED TREATMENT
     Dosage: 2 G, 1X/DAY
     Route: 058
     Dates: start: 20110322, end: 20110323
  6. LYRICA [Suspect]
     Indication: HERPES ZOSTER
     Dosage: 75 MG, 1X/DAY
     Route: 048
     Dates: start: 20110319, end: 20110323
  7. LEVOTHYROXINE SODIUM [Concomitant]
     Dosage: 50 UG, UNK
     Route: 048
  8. FRAXIPARINE [Concomitant]
     Dosage: 0.3 ML, 1X/DAY
     Route: 058
     Dates: start: 20110316
  9. MOVIPREP [Concomitant]
     Route: 048
  10. ZOLPIDEM TARTRATE [Interacting]
     Indication: INSOMNIA
     Dosage: UNK
     Route: 048
  11. ALDACTONE [Concomitant]
     Dosage: 25 MG, 1X/DAY
     Route: 048
     Dates: start: 20110314, end: 20110323

REACTIONS (3)
  - RESPIRATORY ARREST [None]
  - DRUG INTERACTION [None]
  - HYPERCAPNIA [None]
